FAERS Safety Report 5581870-0 (Version None)
Quarter: 2008Q1

REPORT INFORMATION
  Report Type: 
  Country: None (occurrence: None)
  Receive Date: 20080104
  Receipt Date: 20071228
  Transmission Date: 20080703
  Serious: Yes (Hospitalization)
  Sender: FDA-Public Use
  Company Number: FR-ELI_LILLY_AND_COMPANY-FR200712005276

PATIENT
  Sex: Male
  Weight: 78 kg

DRUGS (14)
  1. ALIMTA [Suspect]
     Indication: PLEURAL MESOTHELIOMA
     Dosage: 900 MG, OTHER
     Route: 042
     Dates: start: 20070910, end: 20070910
  2. ALIMTA [Suspect]
     Dosage: 950 MG, OTHER
     Route: 042
     Dates: start: 20071025, end: 20071025
  3. ALIMTA [Suspect]
     Dosage: 900 MG, OTHER
     Route: 042
     Dates: start: 20071116
  4. CISPLATIN [Concomitant]
     Indication: PLEURAL MESOTHELIOMA
     Dosage: 140 MG, OTHER
     Route: 042
     Dates: start: 20070910, end: 20070910
  5. CISPLATIN [Concomitant]
     Dosage: 150 MG, OTHER
     Route: 042
     Dates: start: 20071025, end: 20071025
  6. CISPLATIN [Concomitant]
     Dosage: 130 MG, OTHER
     Route: 042
     Dates: start: 20071116, end: 20071116
  7. VITAMIN B-12 [Concomitant]
     Indication: VITAMIN SUPPLEMENTATION
     Dosage: 1000 UG, UNKNOWN
     Route: 065
     Dates: start: 20070903
  8. FOLIC ACID [Concomitant]
     Indication: VITAMIN SUPPLEMENTATION
     Dosage: 0.4 UNK, UNKNOWN
     Route: 065
     Dates: start: 20070903
  9. SOLUPRED [Concomitant]
     Indication: PROPHYLAXIS
     Dosage: 20 MG, UNKNOWN
     Route: 048
  10. LEXOMIL [Concomitant]
     Indication: PREMEDICATION
     Dosage: UNK, DAILY (1/D)
     Route: 048
  11. MEDIATOR [Concomitant]
     Dosage: 300 MG, DAILY (1/D)
     Route: 048
  12. LIPANTHYL [Concomitant]
     Dosage: 160 MG, DAILY (1/D)
     Route: 048
  13. SOLU-MEDROL [Concomitant]
     Dosage: 120 MG, OTHER
     Route: 042
     Dates: start: 20070910
  14. ZOPHREN [Concomitant]
     Dosage: 8 MG, AS NEEDED
     Route: 042
     Dates: start: 20070910

REACTIONS (1)
  - PROCTOCOLITIS [None]
